FAERS Safety Report 23038930 (Version 1)
Quarter: 2023Q4

REPORT INFORMATION
  Report Type: Spontaneous
  Country: US (occurrence: US)
  Receive Date: 20231006
  Receipt Date: 20231006
  Transmission Date: 20240109
  Serious: No
  Sender: FDA-Public Use
  Company Number: US-SANDOZ-SDZ2023US038304

PATIENT
  Sex: Female
  Weight: 72.73 kg

DRUGS (6)
  1. BETAMETHASONE [Suspect]
     Active Substance: BETAMETHASONE
     Indication: Psoriasis
     Route: 065
  2. CLOBETASOL [Suspect]
     Active Substance: CLOBETASOL
     Indication: Psoriasis
     Dosage: UNK
     Route: 065
  3. KETOCONAZOLE [Suspect]
     Active Substance: KETOCONAZOLE
     Indication: Psoriasis
     Route: 065
  4. KETOCONAZOLE [Suspect]
     Active Substance: KETOCONAZOLE
     Indication: Psoriasis
     Route: 065
  5. TEMOVATE E [Suspect]
     Active Substance: CLOBETASOL PROPIONATE
     Indication: Psoriasis
     Route: 065
  6. TEMOVATE E [Suspect]
     Active Substance: CLOBETASOL PROPIONATE
     Indication: Psoriasis
     Route: 065

REACTIONS (2)
  - Psoriasis [Unknown]
  - Drug ineffective [Unknown]
